FAERS Safety Report 7110411-1 (Version None)
Quarter: 2010Q4

REPORT INFORMATION
  Report Type: 
  Country: None (occurrence: None)
  Receive Date: 20101118
  Receipt Date: 20101112
  Transmission Date: 20110411
  Serious: Yes (Death, Hospitalization, Other)
  Sender: FDA-Public Use
  Company Number: PHHY2010FR77211

PATIENT
  Age: 10 Year
  Sex: Male

DRUGS (24)
  1. CYCLOSPORINE [Suspect]
     Indication: STEM CELL TRANSPLANT
  2. CORTICOSTEROID NOS [Suspect]
     Indication: GRAFT VERSUS HOST DISEASE
  3. CYCLOPHOSPHAMIDE [Concomitant]
     Dosage: 120 MG/KGUNK
     Dates: start: 20060313
  4. ACYCLOVIR [Concomitant]
     Dosage: 4.5G, ONCE A DAY
  5. SULFAMETHOXAZOLE [Concomitant]
     Dosage: 1G, THREE TIMES A WEEK
  6. POLYGAM S/D [Concomitant]
     Dosage: 16G, ONCE A WEEK
  7. CEFTAZIDIME [Concomitant]
     Dosage: 6G, QD
  8. AMIKACIN [Concomitant]
     Dosage: 600MG, QD
  9. VANCOMYCIN [Concomitant]
     Dosage: 1.2G, QD
  10. AMPICILLIN [Concomitant]
  11. RIFAMPIN [Concomitant]
  12. ERYTHROMYCIN [Concomitant]
  13. LINCOMYCIN [Concomitant]
  14. PRISTINAMYCIN [Concomitant]
  15. PENICILLIN G [Concomitant]
  16. CEFOTAXIME SODIUM [Concomitant]
  17. AMINOGLYCOSIDE ANTIBACTERIALS [Concomitant]
  18. TRIMETHOPRIM [Concomitant]
  19. FLUOROQUINOLONES [Concomitant]
  20. FUSIDIC ACID [Concomitant]
  21. TETRACYCLINE [Concomitant]
  22. AMOXICILLIN [Concomitant]
  23. CLINDAMYCIN [Concomitant]
  24. IMIPENEM [Concomitant]
     Dosage: 2G, QD

REACTIONS (15)
  - ALTERED STATE OF CONSCIOUSNESS [None]
  - BACTERAEMIA [None]
  - BONE MARROW FAILURE [None]
  - C-REACTIVE PROTEIN INCREASED [None]
  - CONFUSIONAL STATE [None]
  - CSF CULTURE POSITIVE [None]
  - DRUG RESISTANCE [None]
  - HEADACHE [None]
  - LACTOBACILLUS INFECTION [None]
  - MENINGITIS [None]
  - NEUTROPENIA [None]
  - PSEUDOMONAS INFECTION [None]
  - PYREXIA [None]
  - SEPSIS [None]
  - THROMBOCYTOPENIA [None]
